FAERS Safety Report 10187801 (Version 1)
Quarter: 2014Q2

REPORT INFORMATION
  Report Type: Spontaneous
  Country: US (occurrence: US)
  Receive Date: 20140522
  Receipt Date: 20140522
  Transmission Date: 20141212
  Serious: No
  Sender: FDA-Public Use
  Company Number: US-SA-2013SA102451

PATIENT
  Age: 51 Year
  Sex: Male

DRUGS (3)
  1. LANTUS SOLOSTAR [Suspect]
     Dosage: DOSE:20 UNIT(S)
     Route: 051
     Dates: start: 20130927
  2. HUMALOG [Suspect]
     Route: 065
  3. SOLOSTAR [Concomitant]
     Dates: start: 20130927

REACTIONS (5)
  - Visual impairment [Unknown]
  - Discomfort [Unknown]
  - Fatigue [Unknown]
  - Vision blurred [Unknown]
  - Blood glucose increased [Unknown]
